FAERS Safety Report 7211731-2 (Version None)
Quarter: 2011Q1

REPORT INFORMATION
  Report Type: 
  Country: None (occurrence: None)
  Receive Date: 20110105
  Receipt Date: 20101230
  Transmission Date: 20110831
  Serious: Yes (Hospitalization, Disabling)
  Sender: FDA-Public Use
  Company Number: FR-ABBOTT-11P-056-0694902-00

PATIENT
  Age: 60 Year
  Sex: Male

DRUGS (14)
  1. AMAREL [Suspect]
     Indication: OVERDOSE
     Route: 048
     Dates: end: 20101029
  2. JANUVIA [Suspect]
     Indication: OVERDOSE
     Route: 048
     Dates: end: 20101029
  3. GLUCOPHAGE [Suspect]
     Route: 048
     Dates: start: 20101030, end: 20101030
  4. VALSARTAN  AND HYDROCHLOROTHIAZIDE [Suspect]
     Indication: OVERDOSE
     Route: 048
     Dates: end: 20101029
  5. ZOLPIDEM [Concomitant]
     Indication: PRODUCT USED FOR UNKNOWN INDICATION
  6. RIVOTRIL [Suspect]
     Route: 048
     Dates: start: 20101030, end: 20101030
  7. VOLTAREN [Concomitant]
     Indication: PRODUCT USED FOR UNKNOWN INDICATION
  8. AMAREL [Suspect]
     Route: 048
     Dates: start: 20101030, end: 20101030
  9. DEPAKENE [Suspect]
     Route: 048
     Dates: start: 20101030, end: 20101030
  10. GLUCOPHAGE [Suspect]
     Indication: OVERDOSE
     Route: 048
     Dates: end: 20101029
  11. DEPAKENE [Suspect]
     Indication: OVERDOSE
     Route: 048
     Dates: end: 20101029
  12. VALSARTAN  AND HYDROCHLOROTHIAZIDE [Suspect]
     Route: 048
     Dates: end: 20101029
  13. JANUVIA [Suspect]
     Route: 048
     Dates: start: 20101030, end: 20101030
  14. RIVOTRIL [Suspect]
     Indication: OVERDOSE
     Route: 048
     Dates: end: 20101029

REACTIONS (4)
  - RENAL FAILURE ACUTE [None]
  - HYPOGLYCAEMIA [None]
  - GENERALISED OEDEMA [None]
  - DEPRESSED LEVEL OF CONSCIOUSNESS [None]
